FAERS Safety Report 10059686 (Version 2)
Quarter: 2014Q3

REPORT INFORMATION
  Report Type: Spontaneous
  Country: US (occurrence: US)
  Receive Date: 20140404
  Receipt Date: 20140930
  Transmission Date: 20150326
  Serious: No
  Sender: FDA-Public Use
  Company Number: US-PFIZER INC-2014090791

PATIENT
  Age: 64 Year
  Sex: Male

DRUGS (2)
  1. INLYTA [Suspect]
     Active Substance: AXITINIB
     Indication: MALIGNANT NEOPLASM OF RENAL PELVIS
     Dosage: 5 MG, 2X/DAY
     Route: 048
     Dates: start: 20140222
  2. INLYTA [Suspect]
     Active Substance: AXITINIB
     Indication: LUNG NEOPLASM MALIGNANT
     Dosage: 7 MG, 2X/DAY (EVERY 12 HOURS)
     Route: 048
     Dates: start: 20140310

REACTIONS (6)
  - Glossodynia [Unknown]
  - Dyspnoea [Unknown]
  - Eructation [Unknown]
  - Flatulence [Unknown]
  - Dysphonia [Unknown]
  - Cough [Unknown]
